FAERS Safety Report 4508989-7 (Version None)
Quarter: 2004Q4

REPORT INFORMATION
  Report Type: 
  Country: None (occurrence: None)
  Receive Date: 20041122
  Receipt Date: 20041122
  Transmission Date: 20050328
  Serious: Yes (Hospitalization)
  Sender: FDA-Public Use
  Company Number: None

PATIENT
  Age: 58 Year
  Sex: Female

DRUGS (7)
  1. METOCLOPRAMIDE [Suspect]
     Indication: IMPAIRED GASTRIC EMPTYING
     Dosage: UNKNOWN
  2. ASPIRIN [Concomitant]
  3. INSULIN [Concomitant]
  4. PRAVASTATIN [Concomitant]
  5. ADVAIR [Concomitant]
  6. UNITHYROID [Concomitant]
  7. ESOMEPRAZOLE [Concomitant]

REACTIONS (1)
  - ABDOMINAL PAIN [None]
